FAERS Safety Report 4972835-8 (Version None)
Quarter: 2006Q2

REPORT INFORMATION
  Report Type: 
  Country: None (occurrence: None)
  Receive Date: 20060414
  Receipt Date: 20060406
  Transmission Date: 20061013
  Serious: Yes (Other)
  Sender: FDA-Public Use
  Company Number: PHBS2006GB05366

PATIENT
  Age: 26 Year
  Sex: Female

DRUGS (3)
  1. KETOCONAZOLE [Suspect]
     Indication: BLOOD CORTICOTROPHIN INCREASED
     Dosage: 200 MG, BID
  2. GLUCOCORTICOIDS [Suspect]
     Indication: BLOOD CORTICOTROPHIN INCREASED
  3. METYRAPONE [Suspect]
     Indication: BLOOD CORTICOTROPHIN INCREASED
     Dosage: 500 MG, TID

REACTIONS (8)
  - COMPUTERISED TOMOGRAM THORAX ABNORMAL [None]
  - COUGH [None]
  - CREPITATIONS [None]
  - DYSPNOEA [None]
  - HYPOXIA [None]
  - LUNG INFILTRATION [None]
  - PNEUMOCYSTIS JIROVECI PNEUMONIA [None]
  - PYREXIA [None]
